FAERS Safety Report 25869750 (Version 2)
Quarter: 2025Q4

REPORT INFORMATION
  Report Type: Spontaneous
  Country: US (occurrence: US)
  Receive Date: 20251001
  Receipt Date: 20251229
  Transmission Date: 20260118
  Serious: Yes (Other)
  Sender: NOVO NORDISK
  Company Number: US-NOVOPROD-1527598

PATIENT
  Age: 78 Year

DRUGS (1)
  1. OZEMPIC [Suspect]
     Active Substance: SEMAGLUTIDE
     Indication: Type 2 diabetes mellitus
     Dosage: UNK
     Dates: start: 202211, end: 202303

REACTIONS (5)
  - Gastric infection [Not Recovered/Not Resolved]
  - Cholecystitis [Unknown]
  - Impaired gastric emptying [Not Recovered/Not Resolved]
  - Cholelithiasis [Unknown]
  - Pancreatitis [Unknown]

NARRATIVE: CASE EVENT DATE: 20230101
